FAERS Safety Report 4364597-2 (Version None)
Quarter: 2004Q2

REPORT INFORMATION
  Report Type: 
  Country: None (occurrence: None)
  Receive Date: 20040521
  Receipt Date: 20040511
  Transmission Date: 20050107
  Serious: Yes (Other)
  Sender: FDA-Public Use
  Company Number: 2004031829

PATIENT
  Age: 69 Year
  Sex: Male
  Weight: 78.9259 kg

DRUGS (11)
  1. LIPITOR [Suspect]
     Indication: BLOOD CHOLESTEROL INCREASED
     Dosage: 10 MG (10 MG, 1 IN 1 D), ORAL
     Route: 048
  2. ROFECOXIB [Suspect]
     Indication: PAIN
  3. FEXOFENADINE HYDROCHLORIDE [Suspect]
     Indication: SINUS DISORDER
  4. LORATADINE [Suspect]
     Indication: SINUS DISORDER
  5. ESOMEPRAZOLE (ESOMEPRAZOLE) [Concomitant]
  6. GENERAL NUTRIENTS/MINERALS/VITAMINS (GENERAL NUTRIENTS, MINERALS NOS, [Concomitant]
  7. DYAZIDE [Concomitant]
  8. TOCOPHEROL CONCENTRATE CAP [Concomitant]
  9. LECITHIN (LECITHIN) [Concomitant]
  10. COD-LIVER OIL (COD-LIVER OIL) [Concomitant]
  11. PROPRANOLOL [Concomitant]

REACTIONS (12)
  - BODY HEIGHT DECREASED [None]
  - CARDIAC OPERATION [None]
  - CARPAL TUNNEL SYNDROME [None]
  - DEPRESSION [None]
  - DRUG INEFFECTIVE [None]
  - FALL [None]
  - INTERVERTEBRAL DISC DISORDER [None]
  - LIGAMENT DISORDER [None]
  - OEDEMA PERIPHERAL [None]
  - PROSTATIC DISORDER [None]
  - SINUS DISORDER [None]
  - STENT PLACEMENT [None]
